FAERS Safety Report 11783916 (Version 3)
Quarter: 2016Q2

REPORT INFORMATION
  Report Type: Spontaneous
  Country: JP (occurrence: JP)
  Receive Date: 20151128
  Receipt Date: 20160401
  Transmission Date: 20160815
  Serious: Yes (Other)
  Sender: FDA-Public Use
  Company Number: JP-AMGEN-JPNSP2015126917

PATIENT
  Age: 76 Year
  Sex: Female

DRUGS (14)
  1. CALONAL [Concomitant]
     Active Substance: ACETAMINOPHEN
     Dosage: 400 MG, TID
     Route: 048
  2. RANMARK [Suspect]
     Active Substance: DENOSUMAB
     Indication: METASTASES TO BONE
     Dosage: 120 MG, Q4WK
     Route: 058
     Dates: start: 201203, end: 201504
  3. OPALMON [Concomitant]
     Active Substance: LIMAPROST
     Dosage: 10 MUG, BID
     Route: 048
  4. SELBEX [Concomitant]
     Active Substance: TEPRENONE
     Dosage: 50 MG, TID
     Route: 048
  5. AROMASIN [Concomitant]
     Active Substance: EXEMESTANE
     Indication: BREAST CANCER
     Dosage: 25 MG, QD
     Route: 048
  6. NEUROTROPIN                        /06251301/ [Concomitant]
     Dosage: 8 DF, BID
     Route: 048
  7. RINLAXER [Concomitant]
     Active Substance: CHLORPHENESIN CARBAMATE
     Dosage: 250 MG, BID
     Route: 048
  8. BAYASPIRIN [Concomitant]
     Active Substance: ASPIRIN
     Dosage: 100 MG, QD
     Route: 048
  9. GOSHAJINKIGAN [Concomitant]
     Active Substance: HERBALS
     Dosage: 2.5 G, TID
     Route: 048
  10. LOXONIN [Concomitant]
     Active Substance: LOXOPROFEN SODIUM
     Dosage: 50 MG, QD
  11. DENOTAS [Concomitant]
     Active Substance: CALCIUM CARBONATE\CHOLECALCIFEROL\MAGNESIUM CARBONATE
     Dosage: UNK, QD
     Route: 048
  12. GLYCYRON                           /00466401/ [Concomitant]
     Dosage: UNK, TID
     Route: 048
  13. METHYCOBAL [Concomitant]
     Active Substance: METHYLCOBALAMIN
     Dosage: 500 MUG, TID
     Route: 048
  14. BEZATOL [Concomitant]
     Active Substance: BEZAFIBRATE
     Dosage: 200 MG, BID
     Route: 048

REACTIONS (1)
  - Osteonecrosis of jaw [Unknown]

NARRATIVE: CASE EVENT DATE: 201204
